FAERS Safety Report 6200832-3 (Version None)
Quarter: 2009Q2

REPORT INFORMATION
  Report Type: 
  Country: None (occurrence: None)
  Receive Date: 20090522
  Receipt Date: 20080922
  Transmission Date: 20091009
  Serious: No
  Sender: FDA-Public Use
  Company Number: US-ALEXION-A200800232

PATIENT
  Age: 49 Year
  Sex: Female

DRUGS (1)
  1. SOLIRIS [Suspect]
     Indication: PAROXYSMAL NOCTURNAL HAEMOGLOBINURIA

REACTIONS (6)
  - DRUG INEFFECTIVE [None]
  - FATIGUE [None]
  - HAEMOGLOBIN DECREASED [None]
  - HAEMOLYSIS [None]
  - MALAISE [None]
  - RETICULOCYTE COUNT INCREASED [None]
